FAERS Safety Report 25430417 (Version 2)
Quarter: 2025Q2

REPORT INFORMATION
  Report Type: Spontaneous
  Country: IT (occurrence: IT)
  Receive Date: 20250612
  Receipt Date: 20250624
  Transmission Date: 20250716
  Serious: Yes (Hospitalization)
  Sender: MYLAN
  Company Number: None

PATIENT
  Age: 40 Year
  Sex: Male

DRUGS (8)
  1. GABAPENTIN [Suspect]
     Active Substance: GABAPENTIN
     Indication: Product used for unknown indication
     Dates: start: 20250520, end: 20250520
  2. GABAPENTIN [Suspect]
     Active Substance: GABAPENTIN
     Route: 048
     Dates: start: 20250520, end: 20250520
  3. GABAPENTIN [Suspect]
     Active Substance: GABAPENTIN
     Route: 048
     Dates: start: 20250520, end: 20250520
  4. GABAPENTIN [Suspect]
     Active Substance: GABAPENTIN
     Dates: start: 20250520, end: 20250520
  5. LORAZEPAM [Suspect]
     Active Substance: LORAZEPAM
     Indication: Product used for unknown indication
     Dates: start: 20250520, end: 20250520
  6. LORAZEPAM [Suspect]
     Active Substance: LORAZEPAM
     Route: 048
     Dates: start: 20250520, end: 20250520
  7. LORAZEPAM [Suspect]
     Active Substance: LORAZEPAM
     Route: 048
     Dates: start: 20250520, end: 20250520
  8. LORAZEPAM [Suspect]
     Active Substance: LORAZEPAM
     Dates: start: 20250520, end: 20250520

REACTIONS (6)
  - Sopor [Not Recovered/Not Resolved]
  - Suicide attempt [Recovering/Resolving]
  - Confusional state [Not Recovered/Not Resolved]
  - Somnolence [Not Recovered/Not Resolved]
  - Intentional overdose [Not Recovered/Not Resolved]
  - Drug abuse [Not Recovered/Not Resolved]

NARRATIVE: CASE EVENT DATE: 20250520
